FAERS Safety Report 5944261-6 (Version None)
Quarter: 2008Q4

REPORT INFORMATION
  Report Type: 
  Country: None (occurrence: None)
  Receive Date: 20081104
  Receipt Date: 20081024
  Transmission Date: 20090506
  Serious: Yes (Hospitalization)
  Sender: FDA-Public Use
  Company Number: 6046703

PATIENT
  Age: 76 Year
  Sex: Male

DRUGS (6)
  1. BISOPROLOL FUMARATE [Suspect]
     Indication: DRUG USE FOR UNKNOWN INDICATION
     Dosage: 2.5 MG (1.25 MG, 2 IN 1 D)
     Dates: start: 20080925
  2. ACETYLSALICYLIC ACID SRT [Concomitant]
  3. FUROSEMIDE [Concomitant]
  4. BIROLAKTON [Concomitant]
  5. ACETAMINOPHEN [Concomitant]
  6. SOTALOL HCL [Concomitant]

REACTIONS (5)
  - DIARRHOEA [None]
  - GAMMA-GLUTAMYLTRANSFERASE INCREASED [None]
  - HYPOTENSION [None]
  - INFECTION [None]
  - SNEEZING [None]
